FAERS Safety Report 6626503-7 (Version None)
Quarter: 2010Q1

REPORT INFORMATION
  Report Type: 
  Country: None (occurrence: None)
  Receive Date: 20100309
  Receipt Date: 20100309
  Transmission Date: 20100710
  Serious: Yes (Disabling, Other)
  Sender: FDA-Public Use
  Company Number: None

PATIENT
  Age: 51 Year
  Sex: Female
  Weight: 86.1834 kg

DRUGS (1)
  1. CIPRO [Suspect]
     Indication: LOCALISED INFECTION
     Dosage: 750MG 3X DAY FOR 7 DAYS PO
     Route: 048
     Dates: start: 20091107, end: 20091114

REACTIONS (1)
  - TENDON RUPTURE [None]
